FAERS Safety Report 8819226 (Version 1)
Quarter: 2012Q4

REPORT INFORMATION
  Report Type: Spontaneous
  Country: US (occurrence: None)
  Receive Date: 20121004
  Receipt Date: 20121004
  Transmission Date: 20130627
  Serious: Yes (Hospitalization)
  Sender: FDA-Public Use
  Company Number: None

PATIENT
  Age: 46 Year
  Sex: Male
  Weight: 84.8 kg

DRUGS (14)
  1. OFATUMUMAB [Suspect]
     Indication: DIFFUSE LARGE B-CELL LYMPHOMA RECURRENT
     Route: 042
     Dates: start: 20120901
  2. OFATUMUMAB [Suspect]
     Indication: DIFFUSE LARGE B-CELL LYMPHOMA REFRACTORY
     Route: 042
     Dates: start: 20120901
  3. ACYCLOVIR [Concomitant]
  4. FLUCONAZOLE [Concomitant]
  5. LANSOPRAZOLE [Concomitant]
  6. MULTIVITAMIN [Concomitant]
  7. POTASSIUM [Concomitant]
  8. ZOLPIDEM (AMBIEN) [Concomitant]
  9. ZOFRAN [Concomitant]
  10. PROCHLORPERAZINE [Concomitant]
  11. SUCRALFATE [Concomitant]
  12. ATROPINE/HYOSCYAMINE/PB/SCOPOLAMINE [Concomitant]
  13. HYDROCORTISONE TOPICAL [Concomitant]
  14. MAGNESIUM [Concomitant]

REACTIONS (11)
  - Nausea [None]
  - Abdominal pain [None]
  - Hypophagia [None]
  - Febrile neutropenia [None]
  - No therapeutic response [None]
  - Vomiting [None]
  - Graft versus host disease [None]
  - Irritable bowel syndrome [None]
  - Gastrointestinal oedema [None]
  - Metastases to small intestine [None]
  - Enteritis [None]
